FAERS Safety Report 15361852 (Version 2)
Quarter: 2018Q4

REPORT INFORMATION
  Report Type: Spontaneous
  Country: US (occurrence: US)
  Receive Date: 20180907
  Receipt Date: 20181018
  Transmission Date: 20190204
  Serious: No
  Sender: FDA-Public Use
  Company Number: US-AMGEN-USASP2018123451

PATIENT
  Age: 46 Year
  Sex: Male

DRUGS (3)
  1. ENBREL [Suspect]
     Active Substance: ETANERCEPT
     Dosage: 50 MG, INTERMITTENT
     Route: 065
  2. ENBREL [Suspect]
     Active Substance: ETANERCEPT
     Indication: PSORIASIS
     Dosage: 50 MG, QWK
     Route: 065
     Dates: start: 20150310
  3. ENBREL [Suspect]
     Active Substance: ETANERCEPT
     Dosage: 50 MG, AS NECESSARY
     Route: 065

REACTIONS (9)
  - Expired product administered [Unknown]
  - Haematocrit decreased [Unknown]
  - Platelet count increased [Unknown]
  - Haemoglobin decreased [Unknown]
  - Eosinophil count increased [Unknown]
  - Pruritus [Not Recovered/Not Resolved]
  - Red blood cell count decreased [Unknown]
  - Blister [Recovered/Resolved]
  - Intentional product misuse [Unknown]

NARRATIVE: CASE EVENT DATE: 2018
